FAERS Safety Report 24697169 (Version 1)
Quarter: 2024Q4

REPORT INFORMATION
  Report Type: Spontaneous
  Country: HR (occurrence: HR)
  Receive Date: 20241204
  Receipt Date: 20241204
  Transmission Date: 20250115
  Serious: Yes (Other)
  Sender: PFIZER
  Company Number: HR-PFIZER INC-PV202400155491

PATIENT
  Age: 73 Year
  Sex: Male

DRUGS (3)
  1. ELRANATAMAB [Suspect]
     Active Substance: ELRANATAMAB
     Indication: Plasma cell myeloma
     Dosage: 12 MG (RAMP UP DOSE: 12 MG - 32 MG - 76 MG)
     Route: 058
     Dates: start: 202304
  2. ELRANATAMAB [Suspect]
     Active Substance: ELRANATAMAB
     Indication: Anaemia
     Dosage: 32 MG (RAMP UP DOSE: 12 MG - 32 MG - 76 MG)
     Route: 058
  3. ELRANATAMAB [Suspect]
     Active Substance: ELRANATAMAB
     Dosage: 76 MG (RAMP UP DOSE: 12 MG - 32 MG - 76 MG)
     Route: 058

REACTIONS (4)
  - Febrile neutropenia [Unknown]
  - Sepsis [Unknown]
  - Enterococcal infection [Unknown]
  - Neoplasm progression [Unknown]

NARRATIVE: CASE EVENT DATE: 20230101
